FAERS Safety Report 7311448-X (Version None)
Quarter: 2011Q1

REPORT INFORMATION
  Report Type: 
  Country: None (occurrence: None)
  Receive Date: 20110224
  Receipt Date: 20110211
  Transmission Date: 20110831
  Serious: Yes (Death)
  Sender: FDA-Public Use
  Company Number: PL-CELGENEUS-129-21880-11010557

PATIENT
  Sex: Male

DRUGS (6)
  1. METOCARD [Concomitant]
     Route: 065
  2. MILURIT [Concomitant]
     Route: 065
  3. DEXAMETHASONE [Concomitant]
     Route: 065
     Dates: start: 20101221, end: 20101221
  4. DIGOXIN [Concomitant]
     Route: 065
  5. OPACORDEN [Concomitant]
     Route: 065
  6. REVLIMID [Suspect]
     Indication: MULTIPLE MYELOMA
     Route: 048
     Dates: start: 20101221, end: 20101226

REACTIONS (2)
  - RESPIRATORY FAILURE [None]
  - PNEUMONIA [None]
